FAERS Safety Report 8473936-2 (Version None)
Quarter: 2012Q2

REPORT INFORMATION
  Report Type: 
  Country: None (occurrence: None)
  Receive Date: 20120622
  Receipt Date: 20120622
  Transmission Date: 20120825
  Serious: Yes (Life-Threatening, Hospitalization)
  Sender: FDA-Public Use
  Company Number: None

PATIENT
  Age: 63 Year
  Sex: Male
  Weight: 155 kg

DRUGS (24)
  1. CALCITRIOL [Concomitant]
  2. FLUTICASONE PROPIONATE/SALMETEROL [Concomitant]
  3. ALLOPURINOL [Concomitant]
  4. AMLODIPINE [Concomitant]
  5. ERGOCALCIFEROL [Concomitant]
  6. FUROSEMIDE [Concomitant]
  7. DABIGATRAN 150MG BOEHRINGER INGELHEIM [Suspect]
     Indication: CEREBROVASCULAR ACCIDENT PROPHYLAXIS
     Dosage: 150MG BID PO
     Route: 048
     Dates: start: 20120411, end: 20120507
  8. DABIGATRAN 150MG BOEHRINGER INGELHEIM [Suspect]
     Indication: ATRIAL FIBRILLATION
     Dosage: 150MG BID PO
     Route: 048
     Dates: start: 20120411, end: 20120507
  9. LUOXETINE [Concomitant]
  10. POTASSIUM CHLORIDE [Concomitant]
  11. ZOLPIDEM [Concomitant]
  12. ONDANSETRON [Concomitant]
  13. ALBUTEROL [Concomitant]
  14. DABIGATRAN [Concomitant]
  15. FOLIC ACID [Concomitant]
  16. LOSARTAN POTASSIUM [Concomitant]
  17. MOMETASONE NASAL [Concomitant]
  18. MONTELUKAST [Concomitant]
  19. PREDNISONE [Concomitant]
  20. DOCUSATE [Concomitant]
  21. FOSFOMYCIN [Concomitant]
  22. SEVELAMER [Concomitant]
  23. EPOETIN ALFA [Concomitant]
  24. LEVOTHYROXINE SODIUM [Concomitant]

REACTIONS (2)
  - DIVERTICULUM [None]
  - LARGE INTESTINAL HAEMORRHAGE [None]
